FAERS Safety Report 8858551 (Version 4)
Quarter: 2014Q2

REPORT INFORMATION
  Report Type: Report from Study
  Country: IT (occurrence: IT)
  Receive Date: 20121024
  Receipt Date: 20140623
  Transmission Date: 20141212
  Serious: Yes (Other)
  Sender: FDA-Public Use
  Company Number: IT-ROCHE-1145973

PATIENT
  Sex: 0

DRUGS (4)
  1. BEVACIZUMAB [Suspect]
     Indication: MALIGNANT GLIOMA
     Dosage: INDUCTION
     Route: 042
  2. BEVACIZUMAB [Suspect]
     Dosage: MAINTENANCE
     Route: 042
  3. FOTEMUSTINE [Suspect]
     Indication: MALIGNANT GLIOMA
     Dosage: IN THE INDUCTION PHASE DAY 1-8-15 Q28.
     Route: 042
  4. FOTEMUSTINE [Suspect]
     Dosage: MAINTENANCE PHASE
     Route: 042

REACTIONS (14)
  - Neutropenia [Unknown]
  - Lymphopenia [Unknown]
  - Embolism venous [Unknown]
  - Central nervous system haemorrhage [Unknown]
  - Proteinuria [Unknown]
  - Gastrointestinal perforation [Unknown]
  - Thrombocytopenia [Unknown]
  - Hypertransaminasaemia [Unknown]
  - Aspartate aminotransferase increased [Unknown]
  - Alanine aminotransferase increased [Unknown]
  - Vomiting [Unknown]
  - Epistaxis [Unknown]
  - Hypertension [Unknown]
  - Leukopenia [Unknown]
